FAERS Safety Report 16268592 (Version 4)
Quarter: 2019Q3

REPORT INFORMATION
  Report Type: Spontaneous
  Country: US (occurrence: US)
  Receive Date: 20190503
  Receipt Date: 20190913
  Transmission Date: 20191004
  Serious: Yes (Hospitalization, Other)
  Sender: FDA-Public Use
  Company Number: US-BAYER-2019-084835

PATIENT
  Age: 26 Year
  Sex: Female
  Weight: 87.08 kg

DRUGS (4)
  1. LUTERA [Concomitant]
     Active Substance: ETHINYL ESTRADIOL\LEVONORGESTREL
     Dosage: UNK
     Route: 048
  2. MULTIVITAMIN 6 [Concomitant]
     Dosage: UNK
  3. SKYLA [Suspect]
     Active Substance: LEVONORGESTREL
     Indication: INTRAUTERINE CONTRACEPTION
     Dosage: 14 MCG/24HR, CONT
     Route: 015
     Dates: start: 20180718, end: 20190412
  4. IBUPROFEN. [Concomitant]
     Active Substance: IBUPROFEN
     Dosage: 800 MG, Q6WK
     Route: 048

REACTIONS (13)
  - Abdominal pain lower [None]
  - Fatigue [None]
  - Pollakiuria [None]
  - Abortion spontaneous [None]
  - Pregnancy with contraceptive device [None]
  - Nausea [None]
  - Emotional distress [None]
  - Pain [None]
  - Abortion spontaneous incomplete [None]
  - Haemorrhage in pregnancy [None]
  - Pelvic pain [None]
  - Drug ineffective [None]
  - Depression [None]

NARRATIVE: CASE EVENT DATE: 201904
